FAERS Safety Report 12211084 (Version 1)
Quarter: 2016Q1

REPORT INFORMATION
  Report Type: Spontaneous
  Country: US (occurrence: None)
  Receive Date: 20160324
  Receipt Date: 20160324
  Transmission Date: 20160526
  Serious: Yes (Hospitalization)
  Sender: FDA-Public Use
  Company Number: None

PATIENT
  Age: 57 Year
  Sex: Male
  Weight: 78.2 kg

DRUGS (1)
  1. DAPTOMYCIN. [Suspect]
     Active Substance: DAPTOMYCIN
     Indication: THROMBOPHLEBITIS SEPTIC
     Dosage: 500 MG FREQUENCY - OTHER
     Dates: start: 20160217, end: 20160229

REACTIONS (2)
  - Rhabdomyolysis [None]
  - Myalgia [None]

NARRATIVE: CASE EVENT DATE: 20160229
